FAERS Safety Report 13158402 (Version 1)
Quarter: 2017Q1

REPORT INFORMATION
  Report Type: Spontaneous
  Country: AR (occurrence: AR)
  Receive Date: 20170127
  Receipt Date: 20170127
  Transmission Date: 20170428
  Serious: Yes (Death)
  Sender: FDA-Public Use
  Company Number: AR-MALLINCKRODT-T201700218

PATIENT
  Age: 2 Month
  Sex: Male
  Weight: 4 kg

DRUGS (8)
  1. INOMAX [Suspect]
     Active Substance: NITRIC OXIDE
     Indication: HEART DISEASE CONGENITAL
     Dosage: 10 PPM OVER 26 H
     Dates: start: 20170116, end: 20170117
  2. VASOPRESSIN. [Concomitant]
     Active Substance: VASOPRESSIN
  3. FUROSEMIDE. [Concomitant]
     Active Substance: FUROSEMIDE
  4. FENTANYL. [Concomitant]
     Active Substance: FENTANYL
  5. OMEPRAZOLE. [Concomitant]
     Active Substance: OMEPRAZOLE
  6. ADRENALINE [Concomitant]
     Active Substance: EPINEPHRINE
  7. MILRINONE [Concomitant]
     Active Substance: MILRINONE
  8. DEXMEDETOMIDINE. [Concomitant]
     Active Substance: DEXMEDETOMIDINE

REACTIONS (3)
  - Cardio-respiratory arrest [Fatal]
  - Therapy cessation [Fatal]
  - Device issue [Fatal]

NARRATIVE: CASE EVENT DATE: 20170117
